FAERS Safety Report 5171044-X (Version None)
Quarter: 2006Q4

REPORT INFORMATION
  Report Type: 
  Country: None (occurrence: None)
  Receive Date: 20061213
  Receipt Date: 20030501
  Transmission Date: 20070319
  Serious: Yes (Other)
  Sender: FDA-Public Use
  Company Number: US-GLAXOSMITHKLINE-A0607345A

PATIENT
  Sex: Female
  Weight: 68.2 kg

DRUGS (3)
  1. LOTRONEX [Suspect]
     Indication: IRRITABLE BOWEL SYNDROME
     Dosage: 1MG VARIABLE DOSE
     Route: 048
     Dates: start: 20000531
  2. ANUSOL HC [Concomitant]
  3. PRILOSEC [Concomitant]

REACTIONS (7)
  - COLONIC POLYP [None]
  - CONSTIPATION [None]
  - FAECALOMA [None]
  - GASTROINTESTINAL INJURY [None]
  - HAEMORRHOIDS [None]
  - PROCTALGIA [None]
  - RECTAL HAEMORRHAGE [None]
